FAERS Safety Report 17044537 (Version 1)
Quarter: 2019Q4

REPORT INFORMATION
  Report Type: Other
  Country: US (occurrence: US)
  Receive Date: 20191118
  Receipt Date: 20191118
  Transmission Date: 20200122
  Serious: Yes (Hospitalization)
  Sender: FDA-Public Use
  Company Number: US-LEADIANT BIOSCIENCES, INC.-2019STPI000458

PATIENT

DRUGS (1)
  1. REVCOVI [Suspect]
     Active Substance: ELAPEGADEMASE-LVLR
     Indication: COMBINED IMMUNODEFICIENCY
     Dosage: 2.4 MILLIGRAM, Q2W ALTERNATE BETWEEN 3 VAILS FOR ONE DOSE AND 4 VIALS FOR THE OTHER
     Route: 030
     Dates: start: 20190405

REACTIONS (1)
  - Abscess [Not Recovered/Not Resolved]
